FAERS Safety Report 5409736-7 (Version None)
Quarter: 2007Q3

REPORT INFORMATION
  Report Type: 
  Country: None (occurrence: None)
  Receive Date: 20070809
  Receipt Date: 20070803
  Transmission Date: 20080115
  Serious: Yes (Disabling)
  Sender: FDA-Public Use
  Company Number: B0479973A

PATIENT
  Age: 49 Year
  Sex: Male
  Weight: 102 kg

DRUGS (8)
  1. AVANDIA [Suspect]
     Dosage: 4MG PER DAY
     Route: 065
     Dates: start: 20060621
  2. IRBESARTAN AND HYDROCHLOROTHIAZIDE [Concomitant]
  3. COVERSYL [Concomitant]
     Dosage: 10MG PER DAY
  4. FENOFIBRATE [Concomitant]
     Dosage: 48MG TWICE PER DAY
  5. LIPITOR [Concomitant]
     Dosage: 20MG PER DAY
  6. NOTEN [Concomitant]
     Dosage: 50MG PER DAY
  7. NOVOMIX [Concomitant]
  8. DIAMICRON [Concomitant]
     Dosage: 30MG FOUR TIMES PER DAY

REACTIONS (2)
  - FRACTURE [None]
  - OEDEMA PERIPHERAL [None]
